FAERS Safety Report 23863255 (Version 9)
Quarter: 2025Q2

REPORT INFORMATION
  Report Type: Spontaneous
  Country: US (occurrence: US)
  Receive Date: 20240516
  Receipt Date: 20250609
  Transmission Date: 20250716
  Serious: Yes (Hospitalization, Other)
  Sender: KARYOPHARM THERAPEUTICS
  Company Number: US-KARYOPHARM-2024KPT001041

PATIENT

DRUGS (17)
  1. XPOVIO [Suspect]
     Active Substance: SELINEXOR
     Indication: Plasma cell myeloma
     Route: 048
     Dates: start: 202406
  2. XPOVIO [Suspect]
     Active Substance: SELINEXOR
     Route: 048
  3. XPOVIO [Suspect]
     Active Substance: SELINEXOR
     Route: 048
     Dates: start: 20240429, end: 20240429
  4. XPOVIO [Suspect]
     Active Substance: SELINEXOR
     Dates: start: 2024, end: 20250603
  5. ACYCLOVIR [Concomitant]
     Active Substance: ACYCLOVIR
  6. COREG CR [Concomitant]
     Active Substance: CARVEDILOL PHOSPHATE
  7. CLONIDINE [Concomitant]
     Active Substance: CLONIDINE
  8. DECADRON [Concomitant]
     Active Substance: DEXAMETHASONE
  9. LASIX [Concomitant]
     Active Substance: FUROSEMIDE
  10. OLANZAPINE [Concomitant]
     Active Substance: OLANZAPINE
  11. TRAMADOL [Concomitant]
     Active Substance: TRAMADOL
  12. PROCHLORPERAZINE [Concomitant]
     Active Substance: PROCHLORPERAZINE
  13. VELCADE [Concomitant]
     Active Substance: BORTEZOMIB
  14. ZOFRAN [Concomitant]
     Active Substance: ONDANSETRON HYDROCHLORIDE
  15. ZUBSOLV [Concomitant]
     Active Substance: BUPRENORPHINE HYDROCHLORIDE\NALOXONE HYDROCHLORIDE
  16. CARVEDILOL [Concomitant]
     Active Substance: CARVEDILOL
  17. FUROSEMIDE [Concomitant]
     Active Substance: FUROSEMIDE

REACTIONS (11)
  - Cellulitis [Unknown]
  - Loss of consciousness [Recovering/Resolving]
  - Neck pain [Unknown]
  - Dry eye [Not Recovered/Not Resolved]
  - Infection [Recovered/Resolved]
  - Confusional state [Not Recovered/Not Resolved]
  - Hallucination, auditory [Recovering/Resolving]
  - Fatigue [Recovered/Resolved]
  - Nausea [Unknown]
  - Vision blurred [Unknown]
  - Wrong technique in product usage process [Unknown]

NARRATIVE: CASE EVENT DATE: 20240101
